FAERS Safety Report 9246800 (Version 3)
Quarter: 2013Q2

REPORT INFORMATION
  Report Type: Spontaneous
  Country: US (occurrence: US)
  Receive Date: 20130422
  Receipt Date: 20130430
  Transmission Date: 20140414
  Serious: Yes (Other)
  Sender: FDA-Public Use
  Company Number: US-PFIZER INC-2013121291

PATIENT
  Age: 45 Year
  Sex: Female
  Weight: 77.1 kg

DRUGS (6)
  1. EFFEXOR XR [Suspect]
     Indication: BIPOLAR DISORDER
     Dosage: 225 MG DAILY
     Route: 048
     Dates: start: 2006
  2. EFFEXOR XR [Suspect]
     Indication: DEPRESSION
     Dosage: 75 MG, UNK
     Dates: start: 2006
  3. EFFEXOR XR [Suspect]
     Dosage: 150 MG IN THE MORNING AND 75 MG IN THE AFTERNOON
  4. LORAZEPAM [Suspect]
     Indication: INSOMNIA
     Dosage: 0.5 MG, 1X/DAY
     Dates: start: 201304
  5. LITHIUM CARBONATE [Concomitant]
     Dosage: 450 MG DAILY
  6. ATIVAN [Concomitant]
     Indication: INSOMNIA
     Dosage: 0.5 MG, AS NEEDED

REACTIONS (13)
  - Suspected counterfeit product [Unknown]
  - Product taste abnormal [Unknown]
  - Drug ineffective for unapproved indication [Unknown]
  - Agitation [Recovered/Resolved]
  - Amnesia [Unknown]
  - Diarrhoea [Recovered/Resolved]
  - Off label use [Unknown]
  - Nervous system disorder [Unknown]
  - Memory impairment [Unknown]
  - Insomnia [Unknown]
  - Dyskinesia [Unknown]
  - Feeling abnormal [Unknown]
  - Product quality issue [Unknown]
